FAERS Safety Report 4411341-6 (Version None)
Quarter: 2004Q2

REPORT INFORMATION
  Report Type: 
  Country: None (occurrence: None)
  Receive Date: 20040630
  Receipt Date: 20040430
  Transmission Date: 20050107
  Serious: No
  Sender: FDA-Public Use
  Company Number: 04P-163-0259596-00

PATIENT
  Age: 35 Year
  Sex: Female
  Weight: 78.0187 kg

DRUGS (6)
  1. HUMIRA [Suspect]
     Indication: RHEUMATOID ARTHRITIS
     Dosage: 40 MG, 1 IN 2 WK, SUBCUTANEOUS
     Route: 058
     Dates: start: 20040110, end: 20040330
  2. PREDNISONE [Concomitant]
  3. HYDROXYCHLOROQUINE PHOSPHATE [Concomitant]
  4. AMYTRIPTILLINE [Concomitant]
  5. TRAMADOL HCL [Concomitant]
  6. RISEDRONATE SODIUM [Concomitant]

REACTIONS (6)
  - BLOOD THYROID STIMULATING HORMONE INCREASED [None]
  - DIZZINESS [None]
  - GLOSSODYNIA [None]
  - NAUSEA [None]
  - PROTEIN TOTAL INCREASED [None]
  - WEIGHT INCREASED [None]
